FAERS Safety Report 7770284-0 (Version None)
Quarter: 2011Q3

REPORT INFORMATION
  Report Type: 
  Country: None (occurrence: None)
  Receive Date: 20110922
  Receipt Date: 20100817
  Transmission Date: 20111222
  Serious: No
  Sender: FDA-Public Use
  Company Number: US-ASTRAZENECA-2010SE38647

PATIENT
  Age: 53 Year
  Sex: Female
  Weight: 77.1 kg

DRUGS (1)
  1. SEROQUEL [Suspect]
     Indication: BIPOLAR DISORDER
     Route: 048
     Dates: start: 20080101

REACTIONS (8)
  - APATHY [None]
  - DIZZINESS [None]
  - CONFUSIONAL STATE [None]
  - AMNESIA [None]
  - ANXIETY [None]
  - INSOMNIA [None]
  - INCORRECT DOSE ADMINISTERED [None]
  - WEIGHT INCREASED [None]
